FAERS Safety Report 10652877 (Version 2)
Quarter: 2014Q4

REPORT INFORMATION
  Report Type: Report from Study
  Country: US (occurrence: US)
  Receive Date: 20141215
  Receipt Date: 20141215
  Transmission Date: 20150529
  Serious: Yes (Hospitalization, Other)
  Sender: FDA-Public Use
  Company Number: US-MYLANLABS-2014M1010384

PATIENT

DRUGS (6)
  1. INOTUZUMAB [Suspect]
     Active Substance: INOTUZUMAB OZOGAMICIN
     Dosage: ON DAY 2 AND 3 (CYCLES 2 AND 4 ONLY)
     Route: 042
  2. METHOTREXATE [Suspect]
     Active Substance: METHOTREXATE
     Dosage: 50 MG/M2, OVER 2 HRS ON DAY 1
     Route: 042
  3. RITUXIMAB [Suspect]
     Active Substance: RITUXIMAB
     Dosage: 375 MG/M2, ON DAY 2 AND 8 OF CYCLES 2 AND 4
     Route: 042
  4. METHOTREXATE [Suspect]
     Active Substance: METHOTREXATE
     Dosage: 200 MG/M2, CONTINUOUS INFUSION OVER 22 HOURS ON DAY 1
     Route: 042
  5. PEGFILGRASTIM [Suspect]
     Active Substance: PEGFILGRASTIM
     Dosage: 6 MG, ON DAY 4 UNTIL RECOVERY OF GRANULOCTYE COUNT
     Route: 058
  6. ARA-C [Suspect]
     Active Substance: CYTARABINE
     Dosage: 0.5 MG/M2, OVER 3 HOURS BID X 4 DOSES ON DAYS 2 AND 3
     Route: 042

REACTIONS (2)
  - Ascites [Not Recovered/Not Resolved]
  - Dyspnoea [Not Recovered/Not Resolved]

NARRATIVE: CASE EVENT DATE: 20141023
